FAERS Safety Report 8890188 (Version 3)
Quarter: 2013Q1

REPORT INFORMATION
  Report Type: Spontaneous
  Country: US (occurrence: US)
  Receive Date: 20121107
  Receipt Date: 20130116
  Transmission Date: 20140127
  Serious: No
  Sender: FDA-Public Use
  Company Number: US-BAYER-2012-116455

PATIENT
  Age: 79 Year
  Sex: Male

DRUGS (2)
  1. STAXYN (FDT/ODT) [Suspect]
     Indication: ERECTILE DYSFUNCTION
     Dosage: 5 TIMES IN A MONTH
     Route: 048
     Dates: start: 2012, end: 20121103
  2. SAME THREE OR FOUR UNSPECIFIED MEDICATIONS [Concomitant]

REACTIONS (3)
  - Spontaneous penile erection [None]
  - Drug ineffective [None]
  - Drug ineffective [None]
